FAERS Safety Report 7833917-6 (Version None)
Quarter: 2011Q4

REPORT INFORMATION
  Report Type: 
  Country: None (occurrence: None)
  Receive Date: 20111024
  Receipt Date: 20111017
  Transmission Date: 20120403
  Serious: Yes (Death)
  Sender: FDA-Public Use
  Company Number: US-CELGENEUS-163-21880-11092948

PATIENT
  Sex: Female

DRUGS (23)
  1. DEXAMETHASONE [Concomitant]
     Dosage: 40 MILLIGRAM
     Route: 048
  2. RAMIPRIL [Concomitant]
     Dosage: 2.5 MILLIGRAM
     Route: 048
  3. ACETAMINOPHEN AND HYDROCODONE BITARTRATE [Concomitant]
     Indication: PAIN
     Dosage: 325MG-7.5MG 1 TABLET
     Route: 048
  4. ACETAMINOPHEN AND HYDROCODONE BITARTRATE [Concomitant]
     Dosage: 7.5 MG-325MG 2 TABLETS
     Route: 048
  5. LORAZEPAM [Concomitant]
     Indication: ANXIETY
     Dosage: 1 TABLET
     Route: 048
  6. ONDANSETRON [Concomitant]
     Indication: VOMITING
  7. ACYCLOVIR [Concomitant]
     Dosage: 5 GRAM
     Route: 061
  8. ALLOPURINOL [Concomitant]
     Dosage: 300 MILLIGRAM
     Route: 048
  9. CHOLECALCIFEROL [Concomitant]
     Dosage: 2000 IU (INTERNATIONAL UNIT)
     Route: 048
  10. TRIAMTERENE AND HYDROCHLOROTHIAZIDE [Concomitant]
     Dosage: 1 CAPSULE
     Route: 048
  11. MILK THISTLE [Concomitant]
     Dosage: 1000 MILLIGRAM
     Route: 048
  12. FISH OIL [Concomitant]
     Dosage: 1 TABLET
     Route: 048
  13. MAGNESIUM [Concomitant]
     Dosage: 1 TABLET
     Route: 048
  14. VITAMIN B-12 [Concomitant]
     Dosage: 500 MICROGRAM
     Route: 048
  15. ONDANSETRON [Concomitant]
     Indication: NAUSEA
     Dosage: 8 MILLIGRAM
     Route: 048
  16. FAMCICLOVIR [Concomitant]
     Dosage: 500 MILLIGRAM
     Route: 048
  17. NYSTATIN [Concomitant]
     Dosage: 100,000 UNITS/G
     Route: 061
  18. SENNA [Concomitant]
     Dosage: 50 MILLIGRAM
     Route: 048
  19. REVLIMID [Suspect]
     Indication: MULTIPLE MYELOMA
     Dosage: 25 MILLIGRAM
     Route: 048
     Dates: start: 20110815, end: 20110913
  20. ALBUTEROL SULFATE AND IPRATROPIUM BROMIDE [Concomitant]
     Dosage: 3 MILLILITER
     Route: 055
  21. AZITHROMYCIN [Concomitant]
     Dosage: 2 TODAY, THEN 1 QD X 4 DAYS
     Route: 048
  22. BUPROPION HCL [Concomitant]
     Dosage: 200 MILLIGRAM
     Route: 048
  23. OMEPRAZOLE [Concomitant]
     Dosage: 40 MILLIGRAM
     Route: 048

REACTIONS (3)
  - SEPSIS [None]
  - NEOPLASM PROGRESSION [None]
  - MULTIPLE MYELOMA [None]
